FAERS Safety Report 22071164 (Version 1)
Quarter: 2023Q1

REPORT INFORMATION
  Report Type: Spontaneous
  Country: GB (occurrence: GB)
  Receive Date: 20230307
  Receipt Date: 20230307
  Transmission Date: 20230417
  Serious: Yes (Hospitalization)
  Sender: FDA-Public Use
  Company Number: GB-002147023-NVSC2023GB048107

PATIENT
  Sex: Male

DRUGS (1)
  1. LUTETIUM OXODOTREOTIDE LU-177 [Suspect]
     Active Substance: LUTETIUM OXODOTREOTIDE LU-177
     Indication: Product used for unknown indication
     Dosage: UNK, RECEIVED FIFTH CYCLE OF TREATMENT
     Route: 065

REACTIONS (3)
  - Pneumonia [Unknown]
  - Sepsis [Unknown]
  - Feeling abnormal [Unknown]
